FAERS Safety Report 25982976 (Version 1)
Quarter: 2025Q4

REPORT INFORMATION
  Report Type: Report from Study
  Country: US (occurrence: US)
  Receive Date: 20251031
  Receipt Date: 20251031
  Transmission Date: 20260117
  Serious: Yes (Other)
  Sender: NOVARTIS
  Company Number: US-002147023-NVSC2025US106310

PATIENT
  Sex: Female

DRUGS (2)
  1. LEQVIO [Suspect]
     Active Substance: INCLISIRAN SODIUM
     Indication: Product used for unknown indication
     Dosage: UNK
     Route: 058
  2. METOPROLOL SUCCINATE [Concomitant]
     Active Substance: METOPROLOL SUCCINATE
     Indication: Product used for unknown indication
     Route: 065

REACTIONS (9)
  - Cardiac failure [Unknown]
  - Injection site pain [Recovered/Resolved]
  - Ligament sprain [Unknown]
  - Arthralgia [Unknown]
  - Concussion [Unknown]
  - Arthritis [Unknown]
  - Oedema peripheral [Unknown]
  - Blood cholesterol decreased [Unknown]
  - Coagulopathy [Unknown]
